FAERS Safety Report 7016953-1 (Version None)
Quarter: 2010Q3

REPORT INFORMATION
  Report Type: 
  Country: None (occurrence: None)
  Receive Date: 20100927
  Receipt Date: 20100917
  Transmission Date: 20110219
  Serious: Yes (Other)
  Sender: FDA-Public Use
  Company Number: US-PFIZER INC-2010119076

PATIENT
  Sex: Male
  Weight: 102 kg

DRUGS (8)
  1. CHANTIX [Suspect]
     Indication: SMOKING CESSATION THERAPY
     Dosage: 0.5 MG, 1X/DAY
     Route: 048
     Dates: start: 20100910, end: 20100919
  2. CHANTIX [Suspect]
     Dosage: 1 MG, 2X/DAY
     Route: 048
     Dates: end: 20100919
  3. HYDROCODONE [Concomitant]
     Indication: PAIN
     Dosage: UNK
  4. SYNTHROID [Concomitant]
     Indication: THYROID DISORDER
     Dosage: UNK
  5. NEXIUM [Concomitant]
     Indication: GASTROOESOPHAGEAL REFLUX DISEASE
     Dosage: UNK
  6. ALBUTEROL [Concomitant]
     Indication: LUNG DISORDER
     Dosage: UNK
  7. COMBIVENT [Concomitant]
  8. VITAMINS [Concomitant]

REACTIONS (8)
  - CARDIAC DISCOMFORT [None]
  - CHEST DISCOMFORT [None]
  - DYSPNOEA [None]
  - HYPERTENSION [None]
  - PSYCHOMOTOR HYPERACTIVITY [None]
  - RASH [None]
  - RASH MACULAR [None]
  - SWOLLEN TONGUE [None]
